FAERS Safety Report 5449361-5 (Version None)
Quarter: 2007Q3

REPORT INFORMATION
  Report Type: 
  Country: None (occurrence: None)
  Receive Date: 20070911
  Receipt Date: 20070830
  Transmission Date: 20080115
  Serious: Yes (Hospitalization, Other)
  Sender: FDA-Public Use
  Company Number: JP-PFIZER INC-2007071342

PATIENT
  Age: 62 Year
  Sex: Male

DRUGS (2)
  1. CELECOX [Suspect]
     Indication: OSTEOARTHRITIS
     Dosage: DAILY DOSE:200MG
     Route: 048
     Dates: start: 20070806, end: 20070820
  2. ALL OTHER THERAPEUTIC PRODUCTS [Concomitant]
     Dosage: DAILY DOSE:1GRAM
     Route: 048

REACTIONS (6)
  - ALANINE AMINOTRANSFERASE INCREASED [None]
  - ASPARTATE AMINOTRANSFERASE INCREASED [None]
  - HEPATIC FUNCTION ABNORMAL [None]
  - OEDEMA PERIPHERAL [None]
  - PNEUMONIA [None]
  - TOXIC SKIN ERUPTION [None]
